FAERS Safety Report 4387479-9 (Version None)
Quarter: 2004Q2

REPORT INFORMATION
  Report Type: 
  Country: None (occurrence: None)
  Receive Date: 20040630
  Receipt Date: 20040503
  Transmission Date: 20050107
  Serious: No
  Sender: FDA-Public Use
  Company Number: US-BRISTOL-MYERS SQUIBB COMPANY-12577276

PATIENT
  Age: 53 Year
  Sex: Male
  Weight: 66 kg

DRUGS (3)
  1. REYATAZ [Suspect]
     Indication: HIV INFECTION
     Route: 048
  2. ZERIT [Concomitant]
  3. EPIVIR [Concomitant]

REACTIONS (1)
  - ERECTILE DYSFUNCTION [None]
